FAERS Safety Report 4434585-6 (Version None)
Quarter: 2004Q3

REPORT INFORMATION
  Report Type: 
  Country: None (occurrence: None)
  Receive Date: 20040721
  Receipt Date: 20031008
  Transmission Date: 20050211
  Serious: Yes (Hospitalization)
  Sender: FDA-Public Use
  Company Number: WAES 0310USA01593

PATIENT
  Age: 41 Year
  Sex: Female
  Weight: 61.6892 kg

DRUGS (5)
  1. VIOXX [Suspect]
     Dosage: PO
     Route: 048
     Dates: start: 20030101
  2. VIOXX [Suspect]
     Dosage: 25 MG/DAILY/PO
     Route: 048
     Dates: end: 20030101
  3. LEVOXYL [Concomitant]
  4. PROVENTIL [Concomitant]
  5. PROZAC [Concomitant]

REACTIONS (1)
  - MENINGITIS ASEPTIC [None]
